FAERS Safety Report 10615054 (Version 4)
Quarter: 2015Q2

REPORT INFORMATION
  Report Type: Report from Study
  Country: CA (occurrence: CA)
  Receive Date: 20141201
  Receipt Date: 20150604
  Transmission Date: 20150821
  Serious: Yes (Hospitalization, Other)
  Sender: FDA-Public Use
  Company Number: PHHY2014CA155182

PATIENT
  Sex: Male

DRUGS (1)
  1. CLOZARIL [Suspect]
     Active Substance: CLOZAPINE
     Indication: SCHIZOPHRENIA
     Dosage: 100 OT DAILY
     Route: 048
     Dates: start: 20140131, end: 20150425

REACTIONS (7)
  - Cognitive disorder [Recovering/Resolving]
  - Haematology test abnormal [Recovering/Resolving]
  - Blood pressure decreased [Recovering/Resolving]
  - Foreign body [Recovering/Resolving]
  - Cardiac disorder [Recovering/Resolving]
  - Therapeutic response decreased [Recovering/Resolving]
  - Ejection fraction decreased [Recovering/Resolving]
